FAERS Safety Report 9950493 (Version 1)
Quarter: 2014Q1

REPORT INFORMATION
  Report Type: Report from Study
  Country: US (occurrence: US)
  Receive Date: 20140304
  Receipt Date: 20140304
  Transmission Date: 20141002
  Serious: No
  Sender: FDA-Public Use
  Company Number: US-ABBVIE-13P-163-1074018-00

PATIENT
  Age: 70 Year
  Sex: Female
  Weight: 68.1 kg

DRUGS (1)
  1. HUMIRA [Suspect]
     Indication: CROHN^S DISEASE
     Dosage: CROHN^S DISEASE STARTER PACK
     Route: 058
     Dates: start: 201303

REACTIONS (3)
  - Ligament sprain [Unknown]
  - Injection site pain [Not Recovered/Not Resolved]
  - Fall [Recovered/Resolved]
